FAERS Safety Report 5218078-4 (Version None)
Quarter: 2007Q1

REPORT INFORMATION
  Report Type: 
  Country: None (occurrence: None)
  Receive Date: 20061130
  Receipt Date: 20060705
  Transmission Date: 20070707
  Serious: Yes (Hospitalization)
  Sender: FDA-Public Use
  Company Number: US200605004259

PATIENT
  Age: 63 Year
  Sex: Male

DRUGS (9)
  1. ZYPREXA [Suspect]
     Indication: BIPOLAR DISORDER
     Dosage: 5 MG
     Dates: start: 20060517
  2. TEGRETOL [Concomitant]
  3. COUMADIN [Concomitant]
  4. ACETAMINOPHEN [Concomitant]
  5. LISINOPRIL [Concomitant]
  6. DILTIAZEM [Concomitant]
  7. OMEPRAZOLE [Concomitant]
  8. SENNA (SENNA) [Concomitant]
  9. CARBAMAZEPINE [Concomitant]

REACTIONS (4)
  - BLOOD PRESSURE SYSTOLIC DECREASED [None]
  - COMA [None]
  - HYPOXIA [None]
  - MYOCLONUS [None]
